FAERS Safety Report 7869432 (Version 4)
Quarter: 2013Q1

REPORT INFORMATION
  Report Type: Report from Study
  Country: BR (occurrence: BR)
  Receive Date: 20110324
  Receipt Date: 20130204
  Transmission Date: 20140127
  Serious: Yes (Other)
  Sender: FDA-Public Use
  Company Number: BR-ROCHE-766497

PATIENT
  Age: 59 Year
  Sex: Female
  Weight: 58 kg

DRUGS (4)
  1. ACTEMRA [Suspect]
     Indication: RHEUMATOID ARTHRITIS
     Route: 042
  2. METHOTREXATE [Concomitant]
     Route: 065
  3. SYNTHROID [Concomitant]
     Route: 065
  4. SALINE SOLUTION [Concomitant]
     Indication: PREMEDICATION

REACTIONS (6)
  - Pain [Recovering/Resolving]
  - Hypoaesthesia [Recovering/Resolving]
  - Local swelling [Recovering/Resolving]
  - Weight increased [Unknown]
  - Mental disorder [Unknown]
  - Rheumatoid factor increased [Unknown]
